FAERS Safety Report 4349909-8 (Version None)
Quarter: 2004Q2

REPORT INFORMATION
  Report Type: 
  Country: None (occurrence: None)
  Receive Date: 20040428
  Receipt Date: 20040428
  Transmission Date: 20050107
  Serious: Yes (Death)
  Sender: FDA-Public Use
  Company Number: None

PATIENT
  Age: 67 Year
  Sex: Female

DRUGS (2)
  1. TENECTEPLASE 50 MG [Suspect]
     Indication: CEREBROVASCULAR ACCIDENT
     Dosage: 35 MG ONCE INTRAVENOUS
     Route: 042
     Dates: start: 20040207, end: 20040207
  2. NEXIUM [Concomitant]

REACTIONS (3)
  - HAEMORRHAGE INTRACRANIAL [None]
  - INTRAVENTRICULAR HAEMORRHAGE [None]
  - SUBARACHNOID HAEMORRHAGE [None]
